FAERS Safety Report 4343071-3 (Version None)
Quarter: 2004Q2

REPORT INFORMATION
  Report Type: 
  Country: None (occurrence: None)
  Receive Date: 20040421
  Receipt Date: 20040412
  Transmission Date: 20050107
  Serious: Yes (Hospitalization, Other)
  Sender: FDA-Public Use
  Company Number: US-BRISTOL-MYERS SQUIBB COMPANY-12557872

PATIENT
  Age: 10 Year
  Sex: Female
  Weight: 54 kg

DRUGS (2)
  1. ABILIFY [Suspect]
     Indication: ABNORMAL BEHAVIOUR
     Dosage: INITIAL DOSE 5 MG/DAY, INCREASED TO 10 MG/DAY IN NOV-2003, INCREASED TO 15 MG/DAY IN MAR-2004
     Route: 048
     Dates: start: 20030801, end: 20040331
  2. TENEX [Interacting]

REACTIONS (3)
  - DIABETES MELLITUS INSULIN-DEPENDENT [None]
  - DRUG INTERACTION [None]
  - URINARY INCONTINENCE [None]
